FAERS Safety Report 12045861 (Version 2)
Quarter: 2016Q1

REPORT INFORMATION
  Report Type: Spontaneous
  Country: FR (occurrence: FR)
  Receive Date: 20160208
  Receipt Date: 20160210
  Transmission Date: 20160526
  Serious: Yes (Hospitalization, Other)
  Sender: FDA-Public Use
  Company Number: FR-009507513-1602FRA003552

PATIENT
  Sex: Female

DRUGS (15)
  1. JANUVIA [Suspect]
     Active Substance: SITAGLIPTIN PHOSPHATE
     Indication: TYPE 2 DIABETES MELLITUS
     Dosage: 200 MG, QD
     Route: 048
  2. SPASFON [Suspect]
     Active Substance: PHLOROGLUCINOL
     Indication: CONSTIPATION
     Dosage: UNK, PRN
     Route: 048
     Dates: end: 20151119
  3. MOXYDAR [Suspect]
     Active Substance: ALUMINUM HYDROXIDE\ALUMINUM PHOSPHATE\GUAR GUM\MAGNESIUM HYDROXIDE
     Dosage: UNK, PRN
     Route: 048
     Dates: end: 20151119
  4. ALDACTONE [Suspect]
     Active Substance: SPIRONOLACTONE
     Indication: HYPERTENSION
     Dosage: 25 MG, IN THE MORNING
     Route: 048
  5. GLUCOPHAGE [Suspect]
     Active Substance: METFORMIN HYDROCHLORIDE
     Dosage: 850 MG, IN THE EVENING
     Route: 048
  6. INEXIUM (ESOMEPRAZOLE MAGNESIUM) [Suspect]
     Active Substance: ESOMEPRAZOLE MAGNESIUM
     Dosage: 40 MG, IN THE EVENING
     Route: 048
  7. CIRKAN [Suspect]
     Active Substance: DESONIDE\LIDOCAINE
     Dosage: UNK, PRN
     Route: 048
     Dates: end: 20151119
  8. GLUCOPHAGE [Suspect]
     Active Substance: METFORMIN HYDROCHLORIDE
     Dosage: 500 MG, AT MIDDAY
     Route: 048
  9. LOPRESSOR [Suspect]
     Active Substance: METOPROLOL TARTRATE
     Indication: HYPERTENSION
     Dosage: 200 MG, IN THE MORNING
     Route: 048
  10. PENTASA [Suspect]
     Active Substance: MESALAMINE
     Indication: RECTAL HAEMORRHAGE
     Dosage: 2 G, IN THE MORNING
     Route: 048
  11. HEMI-DAONIL [Suspect]
     Active Substance: GLYBURIDE
     Indication: TYPE 2 DIABETES MELLITUS
     Dosage: 2.5 MG, IN THE MORNING
     Route: 048
  12. PENTASA [Suspect]
     Active Substance: MESALAMINE
     Dosage: 2 G, IN THE EVENING
     Route: 048
  13. GLUCOPHAGE [Suspect]
     Active Substance: METFORMIN HYDROCHLORIDE
     Indication: TYPE 2 DIABETES MELLITUS
     Dosage: 850 MG, IN THE MORNING
     Route: 048
  14. HEMI-DAONIL [Suspect]
     Active Substance: GLYBURIDE
     Dosage: 2.5 MG, IN THE EVENING
     Route: 048
  15. IMODIUM [Suspect]
     Active Substance: LOPERAMIDE HYDROCHLORIDE
     Indication: DIARRHOEA
     Dosage: 2 MG, TID
     Route: 048
     Dates: end: 20151119

REACTIONS (2)
  - Vitamin B12 decreased [Not Recovered/Not Resolved]
  - Pancytopenia [Not Recovered/Not Resolved]
